FAERS Safety Report 16353388 (Version 2)
Quarter: 2019Q2

REPORT INFORMATION
  Report Type: Spontaneous
  Country: JP (occurrence: JP)
  Receive Date: 20190524
  Receipt Date: 20190614
  Transmission Date: 20190711
  Serious: Yes (Other)
  Sender: FDA-Public Use
  Company Number: JP-ASTRAZENECA-2019SE77013

PATIENT
  Age: 60 Year
  Sex: Female

DRUGS (4)
  1. ONGLYZA [Suspect]
     Active Substance: SAXAGLIPTIN HYDROCHLORIDE
     Indication: PRODUCT USED FOR UNKNOWN INDICATION
     Dosage: 2.5MG UNKNOWN
     Route: 048
     Dates: start: 20181204
  2. PABRON (11269902002) [Suspect]
     Active Substance: ACETAMINOPHEN\CAFFEINE\CARBINOXAMINE MALEATE\DEXTROMETHORPHAN HYDROBROMIDE\METHYLEPHEDRINE HYDROCHLORIDE, (+/-)-\RIBOFLAVIN\ SULFOGAIACOL\THIAMINE
     Indication: NASOPHARYNGITIS
     Route: 048
  3. AMLODIN [Suspect]
     Active Substance: AMLODIPINE BESYLATE
     Indication: PRODUCT USED FOR UNKNOWN INDICATION
     Dosage: 2.5MG UNKNOWN
     Route: 048
     Dates: start: 20181114
  4. PELEX (ACETAMINOPHEN\CAFFEINE\CHLORPHENIRAMINE MALEATE\SALICYLAMIDE) [Suspect]
     Active Substance: ACETAMINOPHEN\CAFFEINE\CHLORPHENIRAMINE MALEATE\SALICYLAMIDE
     Indication: PRODUCT USED FOR UNKNOWN INDICATION
     Route: 048
     Dates: start: 20190319

REACTIONS (1)
  - Erythema multiforme [Recovered/Resolved]
